FAERS Safety Report 10047906 (Version 1)
Quarter: 2014Q1

REPORT INFORMATION
  Report Type: Spontaneous
  Country: DE (occurrence: DE)
  Receive Date: 20140331
  Receipt Date: 20140331
  Transmission Date: 20141002
  Serious: Yes (Other)
  Sender: FDA-Public Use
  Company Number: DE-SA-2014SA037263

PATIENT
  Age: 69 Year
  Sex: Male
  Weight: 81 kg

DRUGS (2)
  1. MULTAQ [Suspect]
     Indication: ARRHYTHMIA
     Route: 048
  2. LEUPRORELIN ACETATE [Concomitant]
     Indication: PROSTATE CANCER
     Route: 030

REACTIONS (1)
  - Polyneuropathy [Recovering/Resolving]
